FAERS Safety Report 9921830 (Version 1)
Quarter: 2014Q1

REPORT INFORMATION
  Report Type: Spontaneous
  Country: JP (occurrence: JP)
  Receive Date: 20140225
  Receipt Date: 20140225
  Transmission Date: 20141002
  Serious: Yes (Other)
  Sender: FDA-Public Use
  Company Number: JP-SA-2014SA022284

PATIENT
  Age: 44 Year
  Sex: Male

DRUGS (2)
  1. MYSLEE [Suspect]
     Indication: PRODUCT USED FOR UNKNOWN INDICATION
     Route: 048
     Dates: start: 20130824, end: 20130824
  2. VEGETAMIN [Concomitant]
     Dates: start: 20130824, end: 20130824

REACTIONS (2)
  - Road traffic accident [Unknown]
  - Intentional drug misuse [Unknown]
